FAERS Safety Report 24631819 (Version 2)
Quarter: 2024Q4

REPORT INFORMATION
  Report Type: Spontaneous
  Country: FR (occurrence: FR)
  Receive Date: 20241118
  Receipt Date: 20241217
  Transmission Date: 20250114
  Serious: Yes (Death, Hospitalization)
  Sender: MYLAN
  Company Number: FR-MLMSERVICE-20240923-PI198564-00273-1

PATIENT
  Age: 62 Year
  Sex: Female
  Weight: 85 kg

DRUGS (23)
  1. PROPOFOL [Suspect]
     Active Substance: PROPOFOL
     Indication: Sedative therapy
     Dosage: 150 MILLIGRAM, QH
     Route: 065
  2. PROPOFOL [Suspect]
     Active Substance: PROPOFOL
     Dosage: 300 MILLIGRAM, QH
     Route: 065
  3. MILRINONE [Suspect]
     Active Substance: MILRINONE
     Indication: Vasospasm
     Dosage: UNK
     Route: 065
  4. ATROPINE [Suspect]
     Active Substance: ATROPINE
     Indication: Bradycardia
     Dosage: 1 MILLIGRAM
     Route: 065
  5. ISOPROTERENOL HYDROCHLORIDE [Suspect]
     Active Substance: ISOPROTERENOL HYDROCHLORIDE
     Indication: Bradycardia
     Dosage: UNK
     Route: 065
  6. AMIKACIN [Concomitant]
     Active Substance: AMIKACIN
     Indication: Evidence based treatment
     Dosage: UNK
     Route: 065
  7. AMIKACIN [Concomitant]
     Active Substance: AMIKACIN
     Indication: Septic shock
  8. NOREPINEPHRINE [Concomitant]
     Active Substance: NOREPINEPHRINE\NOREPINEPHRINE BITARTRATE
     Indication: Shock
     Dosage: 1.5 MICROGRAM/KILOGRAM, QMINUTE (UPTO 1.5 MICROGRAM/KG/MIN)
     Route: 065
  9. SUFENTANIL [Concomitant]
     Active Substance: SUFENTANIL
     Indication: Sedative therapy
     Dosage: 20 MICROGRAM, QH (1 DOSE HOURLY)
     Route: 065
  10. SUFENTANIL [Concomitant]
     Active Substance: SUFENTANIL
     Indication: Prophylaxis
  11. SUFENTANIL [Concomitant]
     Active Substance: SUFENTANIL
     Indication: Nervous system disorder prophylaxis
  12. MIDAZOLAM [Concomitant]
     Active Substance: MIDAZOLAM
     Indication: Nervous system disorder prophylaxis
     Dosage: 4 MILLIGRAM, QH (1 DOSE HOURLY)
     Route: 065
  13. MIDAZOLAM [Concomitant]
     Active Substance: MIDAZOLAM
     Indication: Prophylaxis
     Dosage: 20 MILLIGRAM, QH (1 DOSE HOURLY)
     Route: 065
  14. MIDAZOLAM [Concomitant]
     Active Substance: MIDAZOLAM
     Indication: Sedative therapy
     Dosage: 28 MILLIGRAM, QH (1 DOSE HOURLY)
     Route: 065
  15. CISATRACURIUM [Concomitant]
     Active Substance: CISATRACURIUM
     Indication: Neuromuscular blockade
     Dosage: 40 MILLIGRAM, QH (1 DOSE HOURLY)
  16. CISATRACURIUM [Concomitant]
     Active Substance: CISATRACURIUM
     Indication: Neuromuscular blocking therapy
     Dosage: 20 MILLIGRAM, QH (AFTER 72 HOURS)
  17. CISATRACURIUM [Concomitant]
     Active Substance: CISATRACURIUM
     Dosage: 45 MILLIGRAM, QH (1 DOSE HOURLY)
     Route: 065
  18. PIPERACILLIN AND TAZOBACTAM [Concomitant]
     Active Substance: PIPERACILLIN SODIUM\TAZOBACTAM SODIUM
     Indication: Evidence based treatment
     Dosage: UNK
     Route: 065
  19. PIPERACILLIN AND TAZOBACTAM [Concomitant]
     Active Substance: PIPERACILLIN SODIUM\TAZOBACTAM SODIUM
     Indication: Septic shock
  20. KETAMINE [Concomitant]
     Active Substance: KETAMINE
     Indication: Sedative therapy
     Dosage: 200 MILLIGRAM, QH (1 DOSE HOURLY)
     Route: 065
  21. KETAMINE [Concomitant]
     Active Substance: KETAMINE
     Dosage: 300 MILLIGRAM, QH (1 DOSE HOURLY)
     Route: 065
  22. MORPHINE [Concomitant]
     Active Substance: MORPHINE
     Indication: Sedative therapy
     Dosage: UNK
     Route: 065
  23. THIOPENTAL [Concomitant]
     Active Substance: THIOPENTAL
     Indication: Sedative therapy
     Dosage: UNK
     Route: 065

REACTIONS (1)
  - Propofol infusion syndrome [Fatal]
